FAERS Safety Report 19709485 (Version 1)
Quarter: 2021Q3

REPORT INFORMATION
  Report Type: Spontaneous
  Country: GB (occurrence: GB)
  Receive Date: 20210817
  Receipt Date: 20210817
  Transmission Date: 20211014
  Serious: Yes (Other)
  Sender: FDA-Public Use
  Company Number: GB-MYLANLABS-2021M1051056

PATIENT
  Age: 61 Year
  Sex: Male
  Weight: 99.33 kg

DRUGS (4)
  1. COCODAMOL [Concomitant]
     Active Substance: ACETAMINOPHEN\CODEINE PHOSPHATE
     Dosage: 15MG/500MG
  2. COAPROVEL [Concomitant]
     Active Substance: HYDROCHLOROTHIAZIDE\IRBESARTAN
     Dosage: 300MG/12.5MG
  3. DOXAZOSIN [Suspect]
     Active Substance: DOXAZOSIN MESYLATE
     Indication: HYPERTENSION
     Dosage: 16 MILLIGRAM
     Route: 048
     Dates: start: 20190813
  4. BISOPROLOL [Concomitant]
     Active Substance: BISOPROLOL
     Dosage: 1.25 MILLIGRAM

REACTIONS (1)
  - Gingival bleeding [Not Recovered/Not Resolved]

NARRATIVE: CASE EVENT DATE: 20190913
